FAERS Safety Report 18402181 (Version 2)
Quarter: 2025Q2

REPORT INFORMATION
  Report Type: Spontaneous
  Country: IT (occurrence: IT)
  Receive Date: 20201020
  Receipt Date: 20250628
  Transmission Date: 20250717
  Serious: Yes (Hospitalization, Other)
  Sender: AUROBINDO
  Company Number: IT-MLMSERVICE-20200925-2500252-1

PATIENT
  Age: 94 Year
  Sex: Female

DRUGS (6)
  1. HYDROCHLOROTHIAZIDE [Suspect]
     Active Substance: HYDROCHLOROTHIAZIDE
     Indication: Diuretic therapy
     Route: 065
  2. HALOPERIDOL [Suspect]
     Active Substance: HALOPERIDOL
     Indication: Delirium
     Route: 030
     Dates: start: 20200128
  3. LEVOTHYROXINE [Suspect]
     Active Substance: LEVOTHYROXINE
     Indication: Hypothyroidism
     Dosage: 0.05 MILLIGRAM, ONCE A DAY
     Route: 048
  4. RAMIPRIL [Concomitant]
     Active Substance: RAMIPRIL
     Indication: Hypertension
     Route: 065
  5. SODIUM CHLORIDE [Concomitant]
     Active Substance: SODIUM CHLORIDE
     Indication: Dehydration
     Dosage: 1000 MILLILITRE PER KILOGRAM, ONCE A DAY (1000 ML IN 24 H/PER DAY; CRYSTALLOID SOLUTION)
     Route: 042
     Dates: start: 20200128
  6. PANTOPRAZOLE [Concomitant]
     Active Substance: PANTOPRAZOLE
     Indication: Chronic gastritis
     Route: 065

REACTIONS (6)
  - Epistaxis [Recovered/Resolved]
  - Acute kidney injury [Unknown]
  - Myoclonus [Recovered/Resolved]
  - Dehydration [Unknown]
  - Toxicity to various agents [Recovered/Resolved]
  - Pancytopenia [Recovered/Resolved]

NARRATIVE: CASE EVENT DATE: 20200129
